FAERS Safety Report 22081240 (Version 3)
Quarter: 2023Q2

REPORT INFORMATION
  Report Type: Report from Study
  Country: US (occurrence: US)
  Receive Date: 20230309
  Receipt Date: 20230508
  Transmission Date: 20230722
  Serious: Yes (Other)
  Sender: FDA-Public Use
  Company Number: US-ABBVIE-4246388

PATIENT
  Age: 61 Year
  Sex: Female

DRUGS (2)
  1. RINVOQ [Suspect]
     Active Substance: UPADACITINIB
     Indication: Rheumatoid arthritis
     Route: 048
     Dates: start: 20211118
  2. RINVOQ [Suspect]
     Active Substance: UPADACITINIB
     Indication: Rheumatoid arthritis
     Dosage: LAST ADMINISTRATION DOSE DATE : 2021
     Route: 048
     Dates: start: 20210118

REACTIONS (12)
  - Hip surgery [Recovering/Resolving]
  - Systemic lupus erythematosus [Unknown]
  - Bone densitometry [Unknown]
  - Osteopenia [Unknown]
  - Arthralgia [Unknown]
  - Unevaluable event [Unknown]
  - Bone disorder [Unknown]
  - Pain in extremity [Unknown]
  - Bone operation [Recovering/Resolving]
  - Bone disorder [Unknown]
  - Musculoskeletal disorder [Unknown]
  - Impaired healing [Unknown]

NARRATIVE: CASE EVENT DATE: 20230201
